FAERS Safety Report 7385104-6 (Version None)
Quarter: 2011Q1

REPORT INFORMATION
  Report Type: 
  Country: None (occurrence: None)
  Receive Date: 20110330
  Receipt Date: 20100921
  Transmission Date: 20110831
  Serious: Yes (Hospitalization, Other)
  Sender: FDA-Public Use
  Company Number: US-BAYER-201023407NA

PATIENT
  Sex: Female
  Weight: 63.492 kg

DRUGS (3)
  1. YASMIN [Suspect]
     Indication: CONTRACEPTION
     Route: 048
     Dates: start: 20061201, end: 20071118
  2. ADVIL [IBUPROFEN] [Concomitant]
  3. IBUPROFEN [Concomitant]

REACTIONS (1)
  - DEEP VEIN THROMBOSIS [None]
